FAERS Safety Report 23705397 (Version 1)
Quarter: 2024Q2

REPORT INFORMATION
  Report Type: Report from Study
  Country: US (occurrence: None)
  Receive Date: 20240404
  Receipt Date: 20240404
  Transmission Date: 20240716
  Serious: Yes (Life-Threatening)
  Sender: FDA-Public Use
  Company Number: 2022A416607

PATIENT
  Sex: Female

DRUGS (1)
  1. LYNPARZA [Suspect]
     Active Substance: OLAPARIB
     Indication: Fallopian tube cancer
     Route: 048
     Dates: start: 20210701

REACTIONS (4)
  - Blood pressure increased [Unknown]
  - Gastric dilatation [Unknown]
  - Nasopharyngitis [Unknown]
  - Product dose omission issue [Unknown]
